FAERS Safety Report 9555823 (Version 1)
Quarter: 2013Q3

REPORT INFORMATION
  Report Type: Spontaneous
  Country: US (occurrence: None)
  Receive Date: 20130815
  Receipt Date: 20130815
  Transmission Date: 20140515
  Serious: Yes (Other)
  Sender: FDA-Public Use
  Company Number: ADR-2013-00730

PATIENT
  Age: 56 Year
  Sex: Female

DRUGS (3)
  1. BACLOFEN INTRATHECAL [Suspect]
  2. DILAUDID (HYDROMORPHONE) [Concomitant]
  3. BUPIVACIANE [Concomitant]

REACTIONS (3)
  - Drug withdrawal syndrome [None]
  - Pain [None]
  - Therapeutic response unexpected [None]
